FAERS Safety Report 17070595 (Version 5)
Quarter: 2020Q2

REPORT INFORMATION
  Report Type: Spontaneous
  Country: JP (occurrence: JP)
  Receive Date: 20191125
  Receipt Date: 20200624
  Transmission Date: 20200713
  Serious: Yes (Death, Hospitalization)
  Sender: FDA-Public Use
  Company Number: JP-JNJFOC-20191124110

PATIENT
  Age: 83 Year
  Sex: Female

DRUGS (7)
  1. RHEUMATREX [Concomitant]
     Active Substance: METHOTREXATE SODIUM
     Dosage: PERORAL MEDICINE
     Route: 048
  2. SIMPONI [Suspect]
     Active Substance: GOLIMUMAB
     Indication: RHEUMATOID ARTHRITIS
     Dosage: GOLIMUMAB(GENETICAL RECOMBINATION)50MG
     Route: 058
  3. PROSULTIAMINE [Concomitant]
     Active Substance: PROSULTIAMINE
     Route: 065
  4. REBAMIPIDE [Concomitant]
     Active Substance: REBAMIPIDE
     Route: 048
  5. CELECOX [Concomitant]
     Active Substance: CELECOXIB
     Route: 048
  6. SIMPONI [Suspect]
     Active Substance: GOLIMUMAB
     Route: 058
     Dates: start: 20191115
  7. FOLIAMIN [Concomitant]
     Active Substance: FOLIC ACID
     Dosage: PERORAL MEDICINE
     Route: 048

REACTIONS (3)
  - Fall [Unknown]
  - Cardiac failure [Fatal]
  - Lumbar vertebral fracture [Not Recovered/Not Resolved]

NARRATIVE: CASE EVENT DATE: 201911
